FAERS Safety Report 22186418 (Version 1)
Quarter: 2023Q2

REPORT INFORMATION
  Report Type: Spontaneous
  Country: BR (occurrence: BR)
  Receive Date: 20230407
  Receipt Date: 20230407
  Transmission Date: 20230722
  Serious: Yes (Hospitalization)
  Sender: FDA-Public Use
  Company Number: BR-BAYER-2021A248254

PATIENT
  Age: 16 Year

DRUGS (1)
  1. XARELTO [Suspect]
     Active Substance: RIVAROXABAN
     Indication: Thrombophlebitis
     Dosage: 10 MG
     Route: 048

REACTIONS (2)
  - Thrombophlebitis [Unknown]
  - Off label use [Unknown]
